FAERS Safety Report 6170760-0 (Version None)
Quarter: 2009Q2

REPORT INFORMATION
  Report Type: 
  Country: None (occurrence: None)
  Receive Date: 20090428
  Receipt Date: 20090418
  Transmission Date: 20091009
  Serious: Yes (Other)
  Sender: FDA-Public Use
  Company Number: US-AMGEN-QUU343499

PATIENT
  Sex: Female

DRUGS (3)
  1. ENBREL [Suspect]
     Indication: PSORIASIS
     Route: 058
     Dates: start: 20090406
  2. ENBREL [Suspect]
     Indication: CROHN'S DISEASE
  3. IMURAN [Concomitant]
     Route: 048

REACTIONS (4)
  - LOSS OF CONSCIOUSNESS [None]
  - PALLOR [None]
  - PYREXIA [None]
  - TUNNEL VISION [None]
